FAERS Safety Report 8562674-3 (Version None)
Quarter: 2012Q3

REPORT INFORMATION
  Report Type: 
  Country: None (occurrence: None)
  Receive Date: 20120802
  Receipt Date: 20120716
  Transmission Date: 20120928
  Serious: No
  Sender: FDA-Public Use
  Company Number: US-AMGEN-USASP2012044043

PATIENT
  Age: 37 Year
  Sex: Male

DRUGS (1)
  1. ENBREL [Suspect]
     Indication: RHEUMATOID ARTHRITIS
     Dosage: 50 MG, QWK
     Dates: start: 20120711

REACTIONS (6)
  - HEADACHE [None]
  - EYE IRRITATION [None]
  - PARANASAL SINUS HYPERSECRETION [None]
  - JOINT STIFFNESS [None]
  - FATIGUE [None]
  - UPPER RESPIRATORY TRACT CONGESTION [None]
